FAERS Safety Report 25454147 (Version 2)
Quarter: 2025Q2

REPORT INFORMATION
  Report Type: Spontaneous
  Country: IT (occurrence: IT)
  Receive Date: 20250619
  Receipt Date: 20250625
  Transmission Date: 20250716
  Serious: Yes (Death, Life-Threatening, Hospitalization, Other)
  Sender: CELLTRION
  Company Number: IT-PFIZER INC-PV202400133022

PATIENT

DRUGS (93)
  1. RITUXIMAB [Suspect]
     Active Substance: RITUXIMAB
     Indication: Diffuse large B-cell lymphoma stage III
     Route: 042
     Dates: start: 20240805, end: 20240805
  2. RITUXIMAB [Suspect]
     Active Substance: RITUXIMAB
     Route: 042
     Dates: start: 20240905, end: 20240905
  3. RITUXIMAB [Suspect]
     Active Substance: RITUXIMAB
     Route: 042
     Dates: start: 20240805, end: 20240805
  4. RITUXIMAB [Suspect]
     Active Substance: RITUXIMAB
     Route: 042
     Dates: start: 20240905, end: 20240905
  5. RITUXIMAB [Suspect]
     Active Substance: RITUXIMAB
     Route: 042
     Dates: start: 20240805, end: 20240905
  6. DOXORUBICIN HYDROCHLORIDE [Suspect]
     Active Substance: DOXORUBICIN HYDROCHLORIDE
     Indication: Diffuse large B-cell lymphoma stage III
     Route: 042
     Dates: start: 20240806, end: 20240806
  7. DOXORUBICIN HYDROCHLORIDE [Suspect]
     Active Substance: DOXORUBICIN HYDROCHLORIDE
     Route: 042
     Dates: start: 20240905, end: 20240905
  8. EPCORITAMAB [Suspect]
     Active Substance: EPCORITAMAB
     Indication: Diffuse large B-cell lymphoma stage III
     Route: 058
     Dates: start: 20240806, end: 20240806
  9. EPCORITAMAB [Suspect]
     Active Substance: EPCORITAMAB
     Route: 058
     Dates: start: 20240826, end: 20240912
  10. EPCORITAMAB [Suspect]
     Active Substance: EPCORITAMAB
     Route: 058
     Dates: start: 20240813, end: 20240813
  11. EPCORITAMAB [Suspect]
     Active Substance: EPCORITAMAB
     Route: 058
     Dates: start: 20240806, end: 20240912
  12. EPCORITAMAB [Suspect]
     Active Substance: EPCORITAMAB
     Route: 058
     Dates: start: 20240912
  13. EPCORITAMAB [Suspect]
     Active Substance: EPCORITAMAB
     Route: 058
     Dates: start: 20240905, end: 20240905
  14. CYCLOPHOSPHAMIDE [Suspect]
     Active Substance: CYCLOPHOSPHAMIDE
     Indication: Diffuse large B-cell lymphoma stage III
     Route: 042
     Dates: start: 20240905, end: 20240905
  15. CYCLOPHOSPHAMIDE [Suspect]
     Active Substance: CYCLOPHOSPHAMIDE
     Route: 042
     Dates: start: 20240806, end: 20240806
  16. CYCLOPHOSPHAMIDE [Suspect]
     Active Substance: CYCLOPHOSPHAMIDE
     Route: 042
     Dates: start: 20240806, end: 20240905
  17. METHYLPREDNISOLONE SODIUM SUCCINATE [Suspect]
     Active Substance: METHYLPREDNISOLONE SODIUM SUCCINATE
     Indication: Diffuse large B-cell lymphoma stage III
     Route: 042
     Dates: start: 20240805, end: 20240805
  18. METHYLPREDNISOLONE SODIUM SUCCINATE [Suspect]
     Active Substance: METHYLPREDNISOLONE SODIUM SUCCINATE
     Route: 042
     Dates: start: 20240905, end: 20240905
  19. METHYLPREDNISOLONE SODIUM SUCCINATE [Suspect]
     Active Substance: METHYLPREDNISOLONE SODIUM SUCCINATE
     Route: 042
     Dates: start: 20240826, end: 20240829
  20. VINCRISTINE SULFATE [Suspect]
     Active Substance: VINCRISTINE SULFATE
     Indication: Diffuse large B-cell lymphoma stage III
     Route: 042
     Dates: start: 20240806, end: 20240806
  21. VINCRISTINE SULFATE [Suspect]
     Active Substance: VINCRISTINE SULFATE
     Route: 042
     Dates: start: 20240905, end: 20240905
  22. PREDNISONE [Suspect]
     Active Substance: PREDNISONE
     Indication: Prophylaxis
     Route: 048
     Dates: start: 20240816, end: 20240909
  23. PREDNISONE [Suspect]
     Active Substance: PREDNISONE
     Indication: Pneumonia
     Route: 048
     Dates: start: 20240909, end: 20240912
  24. PREDNISONE [Suspect]
     Active Substance: PREDNISONE
     Indication: Leukaemia
     Route: 048
     Dates: start: 20240820, end: 20240912
  25. PREDNISONE [Suspect]
     Active Substance: PREDNISONE
     Indication: Diffuse large B-cell lymphoma stage III
     Route: 065
     Dates: start: 20240910, end: 20240911
  26. PREDNISONE [Suspect]
     Active Substance: PREDNISONE
     Route: 065
     Dates: start: 20240820, end: 20240820
  27. PREDNISONE [Suspect]
     Active Substance: PREDNISONE
     Route: 048
     Dates: start: 20240816, end: 20240816
  28. PREDNISONE [Suspect]
     Active Substance: PREDNISONE
     Route: 048
     Dates: start: 20240906, end: 20240909
  29. PREDNISONE [Suspect]
     Active Substance: PREDNISONE
     Route: 048
     Dates: start: 20240909, end: 20240909
  30. PREDNISONE [Suspect]
     Active Substance: PREDNISONE
     Indication: Prophylaxis
     Dates: start: 20240910, end: 20240911
  31. PREDNISONE [Suspect]
     Active Substance: PREDNISONE
     Indication: Pneumonia
     Dates: start: 20240820, end: 20240820
  32. PREDNISONE [Suspect]
     Active Substance: PREDNISONE
     Indication: Leukaemia
     Route: 048
     Dates: start: 20240816, end: 20240816
  33. VINCRISTINE [Suspect]
     Active Substance: VINCRISTINE
     Indication: Diffuse large B-cell lymphoma stage III
     Route: 042
     Dates: start: 20240806, end: 20240905
  34. METHYLPREDNISOLONE [Suspect]
     Active Substance: METHYLPREDNISOLONE
     Indication: Diffuse large B-cell lymphoma
     Route: 042
     Dates: start: 20240905, end: 20240905
  35. METHYLPREDNISOLONE [Suspect]
     Active Substance: METHYLPREDNISOLONE
     Route: 042
     Dates: start: 20240805, end: 20240805
  36. METHYLPREDNISOLONE [Suspect]
     Active Substance: METHYLPREDNISOLONE
     Route: 042
     Dates: start: 20240826, end: 20240829
  37. METHYLPREDNISOLONE [Suspect]
     Active Substance: METHYLPREDNISOLONE
     Route: 042
     Dates: start: 20240805, end: 20240905
  38. METHYLPREDNISOLONE [Suspect]
     Active Substance: METHYLPREDNISOLONE
     Route: 042
     Dates: start: 20240805, end: 20240805
  39. METHYLPREDNISOLONE [Suspect]
     Active Substance: METHYLPREDNISOLONE
     Route: 042
     Dates: start: 20240826, end: 20240829
  40. METHYLPREDNISOLONE [Suspect]
     Active Substance: METHYLPREDNISOLONE
     Route: 042
     Dates: start: 20240905, end: 20240905
  41. DOXORUBICIN [Suspect]
     Active Substance: DOXORUBICIN
     Indication: Diffuse large B-cell lymphoma stage III
     Dates: start: 20240806, end: 20240905
  42. DOXORUBICIN [Suspect]
     Active Substance: DOXORUBICIN
     Route: 042
     Dates: start: 20240905, end: 20240905
  43. DOXORUBICIN [Suspect]
     Active Substance: DOXORUBICIN
     Route: 042
     Dates: start: 20240806, end: 20240806
  44. LORATADINE [Concomitant]
     Active Substance: LORATADINE
     Indication: Premedication
     Route: 048
     Dates: start: 20240912, end: 20240912
  45. LORATADINE [Concomitant]
     Active Substance: LORATADINE
     Dates: start: 20240912, end: 20240912
  46. ACETAMINOPHEN [Concomitant]
     Active Substance: ACETAMINOPHEN
     Indication: Premedication
     Route: 065
     Dates: start: 20240826, end: 20240827
  47. ACETAMINOPHEN [Concomitant]
     Active Substance: ACETAMINOPHEN
     Route: 048
     Dates: start: 20240912, end: 20240912
  48. ACETAMINOPHEN [Concomitant]
     Active Substance: ACETAMINOPHEN
     Dates: start: 20240912, end: 20240912
  49. DEXAMETHASONE [Concomitant]
     Active Substance: DEXAMETHASONE
     Indication: Prophylaxis
     Route: 048
     Dates: start: 20240912, end: 20240912
  50. DEXAMETHASONE [Concomitant]
     Active Substance: DEXAMETHASONE
     Route: 048
     Dates: start: 20240826, end: 20240826
  51. DEXAMETHASONE [Concomitant]
     Active Substance: DEXAMETHASONE
     Dates: start: 20240912, end: 20240912
  52. PANTOPRAZOLE [Concomitant]
     Active Substance: PANTOPRAZOLE
     Route: 065
     Dates: start: 20240725
  53. ALLOPURINOL [Concomitant]
     Active Substance: ALLOPURINOL
     Route: 065
     Dates: start: 20240725
  54. ACYCLOVIR [Concomitant]
     Active Substance: ACYCLOVIR
     Route: 065
     Dates: start: 20240725
  55. SULFAMETHOXAZOLE\TRIMETHOPRIM [Concomitant]
     Active Substance: SULFAMETHOXAZOLE\TRIMETHOPRIM
     Route: 065
     Dates: start: 20240725, end: 20240912
  56. LAMIVUDINE [Concomitant]
     Active Substance: LAMIVUDINE
     Route: 065
     Dates: start: 20240725
  57. CYANOCOBALAMIN [Concomitant]
     Active Substance: CYANOCOBALAMIN
     Route: 065
     Dates: start: 20240725
  58. FOLIC ACID [Concomitant]
     Active Substance: FOLIC ACID
     Route: 065
     Dates: start: 20240725
  59. TAMSULOSIN [Concomitant]
     Active Substance: TAMSULOSIN
     Route: 065
     Dates: start: 20240725
  60. TAMSULOSIN [Concomitant]
     Active Substance: TAMSULOSIN
     Route: 065
     Dates: start: 20240819
  61. SIMVASTATIN [Concomitant]
     Active Substance: SIMVASTATIN
     Route: 065
     Dates: start: 20240725
  62. LACIDIPINE [Concomitant]
     Active Substance: LACIDIPINE
     Route: 065
     Dates: start: 20240725
  63. METFORMIN HYDROCHLORIDE\PIOGLITAZONE HYDROCHLORIDE [Concomitant]
     Active Substance: METFORMIN HYDROCHLORIDE\PIOGLITAZONE HYDROCHLORIDE
     Route: 065
     Dates: start: 20240725, end: 20240819
  64. SITAGLIPTIN [Concomitant]
     Active Substance: SITAGLIPTIN
     Route: 065
     Dates: start: 20240725, end: 20240819
  65. FLUCONAZOLE [Concomitant]
     Active Substance: FLUCONAZOLE
     Route: 065
     Dates: start: 20240813
  66. FILGRASTIM [Concomitant]
     Active Substance: FILGRASTIM
     Route: 065
     Dates: start: 20240813, end: 20240816
  67. CEFTAZIDIME [Concomitant]
     Active Substance: CEFTAZIDIME
     Route: 065
     Dates: start: 20240819, end: 20240827
  68. AMIKACIN [Concomitant]
     Active Substance: AMIKACIN
     Route: 065
     Dates: start: 20240819, end: 20240821
  69. ISAVUCONAZOLE [Concomitant]
     Active Substance: ISAVUCONAZOLE
     Route: 065
     Dates: start: 20240827
  70. TOCILIZUMAB [Concomitant]
     Active Substance: TOCILIZUMAB
     Route: 065
     Dates: start: 20240827, end: 20240827
  71. CEFIXIME [Concomitant]
     Active Substance: CEFIXIME
     Route: 065
     Dates: start: 20240912
  72. IMMUNE GLOBULIN NOS [Concomitant]
     Active Substance: IMMUNE GLOBULIN NOS
     Route: 065
     Dates: start: 20240821, end: 20240821
  73. PIPERACILLIN SODIUM\TAZOBACTAM SODIUM [Concomitant]
     Active Substance: PIPERACILLIN SODIUM\TAZOBACTAM SODIUM
     Route: 065
     Dates: start: 20240827, end: 20240830
  74. CANRENONE [Concomitant]
     Active Substance: CANRENONE
     Route: 065
     Dates: start: 20240830
  75. LANTUS [Concomitant]
     Active Substance: INSULIN GLARGINE
     Route: 065
     Dates: start: 20240820
  76. LASIX [Concomitant]
     Active Substance: FUROSEMIDE
     Dates: start: 20240725, end: 20240725
  77. LASIX [Concomitant]
     Active Substance: FUROSEMIDE
     Route: 065
     Dates: start: 20240819
  78. HUMALOG [Concomitant]
     Active Substance: INSULIN LISPRO
     Route: 065
     Dates: start: 20240820
  79. PREDNISONE [Concomitant]
     Active Substance: PREDNISONE
     Indication: Prophylaxis
     Route: 048
     Dates: start: 20240816, end: 20240816
  80. PREDNISONE [Concomitant]
     Active Substance: PREDNISONE
     Indication: Pneumonia
     Dates: start: 20240820, end: 20240820
  81. PREDNISONE [Concomitant]
     Active Substance: PREDNISONE
     Indication: Leukaemia
     Dates: start: 20240910, end: 20240911
  82. PREDNISONE [Concomitant]
     Active Substance: PREDNISONE
     Route: 048
     Dates: start: 20240814, end: 20240816
  83. PREDNISONE [Concomitant]
     Active Substance: PREDNISONE
     Route: 048
     Dates: start: 20240906, end: 20240909
  84. PREDNISONE [Concomitant]
     Active Substance: PREDNISONE
     Route: 065
     Dates: start: 20240816, end: 20240909
  85. PREDNISONE [Concomitant]
     Active Substance: PREDNISONE
     Route: 065
     Dates: start: 20240820, end: 20240912
  86. METHYLPREDNISOLONE [Concomitant]
     Active Substance: METHYLPREDNISOLONE
     Indication: Prophylaxis
     Route: 042
     Dates: start: 20240826, end: 20240829
  87. METHYLPREDNISOLONE [Concomitant]
     Active Substance: METHYLPREDNISOLONE
     Route: 065
     Dates: start: 20240827, end: 20240829
  88. METHYLPREDNISOLONE [Concomitant]
     Active Substance: METHYLPREDNISOLONE
     Route: 048
     Dates: start: 20240826, end: 20240826
  89. METHYLPREDNISOLONE [Concomitant]
     Active Substance: METHYLPREDNISOLONE
     Route: 048
     Dates: start: 20240905, end: 20240905
  90. METHYLPREDNISOLONE [Concomitant]
     Active Substance: METHYLPREDNISOLONE
  91. NISTATIN [Concomitant]
     Active Substance: NYSTATIN
     Route: 065
     Dates: start: 20240813
  92. INSULIN HUMAN [Concomitant]
     Active Substance: INSULIN HUMAN
     Route: 065
     Dates: start: 20240819, end: 20240819
  93. FUROSEMIDE [Concomitant]
     Active Substance: FUROSEMIDE
     Route: 065
     Dates: start: 20240725, end: 20240725

REACTIONS (14)
  - Tachycardia [Fatal]
  - Asthenia [Fatal]
  - Septic shock [Fatal]
  - Pyrexia [Fatal]
  - Hypotension [Fatal]
  - Dyspnoea [Fatal]
  - Chills [Fatal]
  - Hypocapnia [Unknown]
  - Blood lactic acid increased [Unknown]
  - Pneumonitis [Unknown]
  - Respiratory failure [Unknown]
  - Leukopenia [Unknown]
  - Neutropenia [Unknown]
  - Cough [Unknown]

NARRATIVE: CASE EVENT DATE: 20240913
